FAERS Safety Report 22063714 (Version 5)
Quarter: 2023Q2

REPORT INFORMATION
  Report Type: Spontaneous
  Country: SE (occurrence: SE)
  Receive Date: 20230306
  Receipt Date: 20230526
  Transmission Date: 20230722
  Serious: Yes (Other)
  Sender: FDA-Public Use
  Company Number: SE-SANOFI-01510277

PATIENT
  Sex: Female

DRUGS (8)
  1. PRALUENT [Suspect]
     Active Substance: ALIROCUMAB
     Indication: Hyperlipidaemia
     Dosage: UNK UNK, QOW
     Route: 065
  2. PRALUENT [Suspect]
     Active Substance: ALIROCUMAB
     Indication: Myocardial infarction
     Dosage: 75 G, Q3W
     Route: 065
     Dates: start: 20220823
  3. PRALUENT [Suspect]
     Active Substance: ALIROCUMAB
     Dosage: UNK UNK, QOW
     Route: 065
  4. TICAGRELOR [Concomitant]
     Active Substance: TICAGRELOR
     Dosage: UNK
     Dates: start: 20220727, end: 20230114
  5. BISOPROLOL [Concomitant]
     Active Substance: BISOPROLOL
     Dosage: 1,25 /2 PER DAY
  6. CANDESARTAN [Concomitant]
     Active Substance: CANDESARTAN
     Dosage: 12+14/DAY
  7. FELODIPINE [Concomitant]
     Active Substance: FELODIPINE
     Dosage: 5 MG, QD2,5 X 2 MG /DAY
  8. ASPIRIN [Concomitant]
     Active Substance: ASPIRIN
     Dosage: UNK

REACTIONS (15)
  - Myocardial infarction [Unknown]
  - Neoplasm malignant [Unknown]
  - Malaise [Recovering/Resolving]
  - Tinnitus [Recovering/Resolving]
  - Influenza [Recovering/Resolving]
  - COVID-19 [Recovered/Resolved]
  - Stress [Unknown]
  - Vertigo positional [Not Recovered/Not Resolved]
  - General physical health deterioration [Recovered/Resolved]
  - Constipation [Recovered/Resolved]
  - Blepharitis [Unknown]
  - Condition aggravated [Unknown]
  - Injection site pain [Recovered/Resolved]
  - Wrong technique in device usage process [Unknown]
  - Inappropriate schedule of product administration [Unknown]

NARRATIVE: CASE EVENT DATE: 20221022
